FAERS Safety Report 8195320-1 (Version None)
Quarter: 2012Q1

REPORT INFORMATION
  Report Type: 
  Country: None (occurrence: None)
  Receive Date: 20120308
  Receipt Date: 20120305
  Transmission Date: 20120608
  Serious: Yes (Hospitalization, Congenital Anomaly)
  Sender: FDA-Public Use
  Company Number: US-GLAXOSMITHKLINE-A0930794A

PATIENT
  Sex: Male

DRUGS (2)
  1. MULTI-VITAMINS [Concomitant]
  2. PAXIL [Suspect]
     Indication: DEPRESSION
     Dosage: 40MG PER DAY
     Route: 064
     Dates: start: 19970901

REACTIONS (5)
  - PULMONARY ARTERIOVENOUS FISTULA [None]
  - DYSPNOEA [None]
  - HEREDITARY HAEMORRHAGIC TELANGIECTASIA [None]
  - PULMONARY ARTERY DILATATION [None]
  - FOETAL EXPOSURE DURING PREGNANCY [None]
